FAERS Safety Report 23252673 (Version 1)
Quarter: 2023Q4

REPORT INFORMATION
  Report Type: Report from Study
  Country: US (occurrence: US)
  Receive Date: 20231201
  Receipt Date: 20231201
  Transmission Date: 20240110
  Serious: Yes (Other)
  Sender: FDA-Public Use
  Company Number: US-HLS-202301473

PATIENT
  Age: 74 Year
  Sex: Male

DRUGS (1)
  1. CLOZAPINE [Suspect]
     Active Substance: CLOZAPINE
     Indication: Product used for unknown indication
     Dosage: 1) 700 MG DAILY PRIOR TO  23-?MAY-2023?2) 600MG DAILY= 400MG IN THE AFTERNOON AND 200MG HS
     Route: 065
     Dates: start: 1990

REACTIONS (4)
  - Diabetes mellitus [Unknown]
  - Inflammation [Unknown]
  - Parkinson^s disease [Unknown]
  - Skin discolouration [Unknown]

NARRATIVE: CASE EVENT DATE: 20230401
